FAERS Safety Report 18195531 (Version 1)
Quarter: 2020Q3

REPORT INFORMATION
  Report Type: Spontaneous
  Country: US (occurrence: US)
  Receive Date: 20200825
  Receipt Date: 20200825
  Transmission Date: 20201103
  Serious: Yes (Other)
  Sender: FDA-Public Use
  Company Number: US-ASTRAZENECA-2020SF05852

PATIENT
  Age: 47 Year
  Sex: Female

DRUGS (1)
  1. SYMBICORT [Suspect]
     Active Substance: BUDESONIDE\FORMOTEROL FUMARATE DIHYDRATE
     Indication: ACUTE RESPIRATORY FAILURE
     Dosage: 160/4.5 MCG AS REQUIRED AS REQUIRED
     Route: 055
     Dates: start: 202004, end: 202004

REACTIONS (4)
  - Pruritus [Recovered/Resolved]
  - SARS-CoV-2 test negative [Unknown]
  - Product use issue [Unknown]
  - Suspected COVID-19 [Unknown]

NARRATIVE: CASE EVENT DATE: 202004
